FAERS Safety Report 13172027 (Version 1)
Quarter: 2017Q1

REPORT INFORMATION
  Report Type: Spontaneous
  Country: US (occurrence: US)
  Receive Date: 20170131
  Receipt Date: 20170131
  Transmission Date: 20170428
  Serious: No
  Sender: FDA-Public Use
  Company Number: US-TARO-2016TAR00917

PATIENT
  Sex: Male

DRUGS (1)
  1. MOMETASONE FUROATE CREAM USP 0.1% [Suspect]
     Active Substance: MOMETASONE FUROATE
     Dosage: 5 G, ONCE
     Route: 048
     Dates: start: 201610, end: 201610

REACTIONS (3)
  - Incorrect route of drug administration [Recovered/Resolved]
  - Dry mouth [Unknown]
  - Myalgia [Unknown]

NARRATIVE: CASE EVENT DATE: 201610
